FAERS Safety Report 10505127 (Version 2)
Quarter: 2014Q3

REPORT INFORMATION
  Report Type: Spontaneous
  Country: US (occurrence: None)
  Receive Date: 20140915
  Receipt Date: 20140915
  Transmission Date: 20150326
  Serious: Yes (Death, Life-Threatening, Hospitalization)
  Sender: FDA-Public Use
  Company Number: 2012SGN00220

PATIENT
  Age: 40 Year
  Sex: Male

DRUGS (1)
  1. ADCETRIS [Suspect]
     Active Substance: BRENTUXIMAB VEDOTIN
     Indication: NON-HODGKIN^S LYMPHOMA
     Dosage: UNK UNK, Q21D
     Dates: start: 201204

REACTIONS (3)
  - Asthenia [None]
  - Dyspnoea [None]
  - Non-Hodgkin^s lymphoma [None]
